FAERS Safety Report 7180056-6 (Version None)
Quarter: 2010Q4

REPORT INFORMATION
  Report Type: 
  Country: None (occurrence: None)
  Receive Date: 20101221
  Receipt Date: 20101210
  Transmission Date: 20110411
  Serious: Yes (Hospitalization)
  Sender: FDA-Public Use
  Company Number: US-JNJFOC-20101205126

PATIENT
  Sex: Female
  Weight: 57.2 kg

DRUGS (10)
  1. REMICADE [Suspect]
     Indication: INFLAMMATORY BOWEL DISEASE
     Route: 042
  2. REMICADE [Suspect]
     Route: 042
  3. MAGNESIUM [Concomitant]
  4. MESALAMINE [Concomitant]
     Route: 048
  5. PROTON PUMP INHIBITOR [Concomitant]
  6. VITAMIN TAB [Concomitant]
  7. TRICYCLIC ANTIDEPRESSANT [Concomitant]
  8. PROGESTIN INJ [Concomitant]
     Indication: CONTRACEPTION
  9. ANTIHISTAMINES [Concomitant]
     Indication: PREMEDICATION
  10. ACETAMINOPHEN [Concomitant]
     Indication: PREMEDICATION

REACTIONS (4)
  - ARTHRALGIA [None]
  - OEDEMA PERIPHERAL [None]
  - PAIN [None]
  - PYREXIA [None]
